FAERS Safety Report 5467043-0 (Version None)
Quarter: 2007Q3

REPORT INFORMATION
  Report Type: 
  Country: None (occurrence: None)
  Receive Date: 20070925
  Receipt Date: 20070920
  Transmission Date: 20080115
  Serious: Yes (Life-Threatening)
  Sender: FDA-Public Use
  Company Number: B0485980A

PATIENT
  Age: 11 Year
  Sex: Male

DRUGS (1)
  1. AUGMENTIN '125' [Suspect]
     Indication: TONSILLITIS
     Route: 042

REACTIONS (8)
  - ANAPHYLACTIC REACTION [None]
  - CARDIAC ARREST [None]
  - CYANOSIS [None]
  - DYSPNOEA [None]
  - LOSS OF CONSCIOUSNESS [None]
  - PHARMACEUTICAL PRODUCT COMPLAINT [None]
  - PULSE ABSENT [None]
  - WRONG TECHNIQUE IN DRUG USAGE PROCESS [None]
